FAERS Safety Report 8736152 (Version 2)
Quarter: 2012Q4

REPORT INFORMATION
  Report Type: 
  Country: US (occurrence: US)
  Receive Date: 20120822
  Receipt Date: 20121101
  Transmission Date: 20130627
  Serious: Yes (Other)
  Sender: FDA-Public Use
  Company Number: US-ELI_LILLY_AND_COMPANY-US201208004183

PATIENT
  Age: 7 Year
  Sex: Male
  Weight: 54 kg

DRUGS (4)
  1. STRATTERA [Suspect]
     Indication: ATTENTION DEFICIT/HYPERACTIVITY DISORDER
     Dosage: 25 mg, qd
     Route: 048
     Dates: start: 201203
  2. STRATTERA [Suspect]
     Dosage: 18 mg, UNK
  3. STRATTERA [Suspect]
     Dosage: 25 mg, UNK
  4. FLUNASE [Concomitant]
     Dosage: UNK, prn

REACTIONS (5)
  - Electrocardiogram QT prolonged [Recovered/Resolved]
  - Chest pain [Recovered/Resolved]
  - Tachycardia [Recovered/Resolved]
  - Dyspnoea [Recovered/Resolved]
  - Palpitations [Recovered/Resolved]
